FAERS Safety Report 20570985 (Version 1)
Quarter: 2022Q1

REPORT INFORMATION
  Report Type: Spontaneous
  Country: TR (occurrence: TR)
  Receive Date: 20220309
  Receipt Date: 20220309
  Transmission Date: 20220424
  Serious: Yes (Life-Threatening, Hospitalization)
  Sender: FDA-Public Use
  Company Number: TR-ABBVIE-22K-161-4306165-00

PATIENT
  Age: 59 Year
  Sex: Female
  Weight: 90 kg

DRUGS (13)
  1. VALPROATE SODIUM [Suspect]
     Active Substance: VALPROATE SODIUM
     Indication: Product used for unknown indication
     Dosage: 1X4 FLACONS LOAD FOLLOWED WITH 3X1 FLACON MAINTENANCE DOSE
     Route: 065
     Dates: start: 20191115, end: 20191121
  2. NACOSEL [Concomitant]
     Indication: Cough
  3. ENOXAPARIN SODIUM [Concomitant]
     Active Substance: ENOXAPARIN SODIUM
     Indication: Cough
  4. ALBUTEROL SULFATE\IPRATROPIUM BROMIDE [Concomitant]
     Active Substance: ALBUTEROL SULFATE\IPRATROPIUM BROMIDE
     Indication: Cough
  5. CORTAIR [Concomitant]
     Indication: Cough
  6. NIMOTOP [Concomitant]
     Active Substance: NIMODIPINE
     Indication: Cough
  7. AMLODIS [Concomitant]
     Indication: Cough
  8. CARDURA [Concomitant]
     Active Substance: DOXAZOSIN MESYLATE
     Indication: Cough
  9. ULTIVA [Concomitant]
     Active Substance: REMIFENTANIL HYDROCHLORIDE
     Indication: Cough
  10. KEPPRA [Concomitant]
     Active Substance: LEVETIRACETAM
     Indication: Cough
  11. BREVIBLOC [Concomitant]
     Active Substance: ESMOLOL HYDROCHLORIDE
     Indication: Cough
  12. MANNITOL [Concomitant]
     Active Substance: MANNITOL
     Indication: Cough
  13. PIPERACILLIN SODIUM\TAZOBACTAM SODIUM [Concomitant]
     Active Substance: PIPERACILLIN SODIUM\TAZOBACTAM SODIUM
     Indication: Cough

REACTIONS (1)
  - Drug level decreased [Unknown]
